FAERS Safety Report 9438841 (Version 1)
Quarter: 2013Q3

REPORT INFORMATION
  Report Type: Report from Study
  Country: BR (occurrence: BR)
  Receive Date: 20130802
  Receipt Date: 20130802
  Transmission Date: 20140515
  Serious: Yes (Other)
  Sender: FDA-Public Use
  Company Number: BR-ABBOTT-13P-020-1126333-00

PATIENT
  Sex: Female
  Weight: 72 kg

DRUGS (3)
  1. HUMIRA [Suspect]
     Indication: CROHN^S DISEASE
     Dosage: DAY 0
     Route: 058
  2. HUMIRA [Suspect]
     Dosage: DAY 14
     Route: 058
  3. HUMIRA [Suspect]
     Route: 058
     Dates: end: 201303

REACTIONS (1)
  - Gastrointestinal disorder [Unknown]
